FAERS Safety Report 24022353 (Version 1)
Quarter: 2024Q2

REPORT INFORMATION
  Report Type: Report from Study
  Country: BO (occurrence: BO)
  Receive Date: 20240627
  Receipt Date: 20240627
  Transmission Date: 20240716
  Serious: No
  Sender: FDA-Public Use
  Company Number: BO-ROCHE-3436700

PATIENT
  Sex: Female

DRUGS (4)
  1. ENTRECTINIB [Suspect]
     Active Substance: ENTRECTINIB
     Indication: Salivary gland cancer stage IV
     Route: 065
  2. ENTRECTINIB [Suspect]
     Active Substance: ENTRECTINIB
     Route: 065
  3. ENTRECTINIB [Suspect]
     Active Substance: ENTRECTINIB
     Route: 065
  4. ENTRECTINIB [Suspect]
     Active Substance: ENTRECTINIB
     Route: 065

REACTIONS (1)
  - Leukopenia [Recovered/Resolved]

NARRATIVE: CASE EVENT DATE: 20230901
